FAERS Safety Report 23345622 (Version 2)
Quarter: 2024Q1

REPORT INFORMATION
  Report Type: Spontaneous
  Country: US (occurrence: US)
  Receive Date: 20231228
  Receipt Date: 20240206
  Transmission Date: 20240410
  Serious: No
  Sender: FDA-Public Use
  Company Number: US-GSKCCFUS-Case-01890314_AE-105494

PATIENT
  Sex: Male

DRUGS (1)
  1. TRELEGY ELLIPTA [Suspect]
     Active Substance: FLUTICASONE FUROATE\UMECLIDINIUM BROMIDE\VILANTEROL TRIFENATATE
     Indication: Asthma
     Dosage: 1 PUFF(S), QD
     Route: 055
     Dates: start: 202309, end: 202311

REACTIONS (7)
  - Back pain [Not Recovered/Not Resolved]
  - Muscle tightness [Unknown]
  - Tachycardia [Unknown]
  - Chest pain [Unknown]
  - COVID-19 [Unknown]
  - Anxiety [Unknown]
  - Drug ineffective [Unknown]
